FAERS Safety Report 8505596-6 (Version None)
Quarter: 2012Q3

REPORT INFORMATION
  Report Type: 
  Country: None (occurrence: None)
  Receive Date: 20120712
  Receipt Date: 20120703
  Transmission Date: 20120928
  Serious: Yes (Hospitalization)
  Sender: FDA-Public Use
  Company Number: ES-JNJFOC-20120704776

PATIENT
  Age: 77 Year
  Sex: Female

DRUGS (1)
  1. TRAMADOL HCL [Suspect]
     Indication: PAIN
     Dosage: 37.5MG/325 MG COMPRIMIDOS EFFERVESCENTS
     Route: 048
     Dates: start: 20101127, end: 20101216

REACTIONS (4)
  - SOMNOLENCE [None]
  - CONFUSIONAL STATE [None]
  - FALL [None]
  - SYNCOPE [None]
